FAERS Safety Report 10262166 (Version 4)
Quarter: 2014Q3

REPORT INFORMATION
  Report Type: Report from Study
  Country: US (occurrence: US)
  Receive Date: 20140626
  Receipt Date: 20140711
  Transmission Date: 20150326
  Serious: Yes (Life-Threatening, Hospitalization)
  Sender: FDA-Public Use
  Company Number: US-GLAXOSMITHKLINE-A1078618A

PATIENT
  Age: 81 Year
  Sex: Female
  Weight: 69.9 kg

DRUGS (8)
  1. NAPROXEN. [Suspect]
     Active Substance: NAPROXEN
     Indication: PAIN IN EXTREMITY
     Dosage: 375MG TWICE PER DAY
     Route: 048
     Dates: start: 20140408
  2. METOPROLOL [Concomitant]
     Active Substance: METOPROLOL
     Indication: HYPERTENSION
     Route: 048
     Dates: start: 20130717
  3. METHYLFOLATE [Concomitant]
     Indication: SUPPLEMENTATION THERAPY
     Dosage: 1TAB PER DAY
     Route: 048
     Dates: start: 20140203
  4. VITAMIN D CALCIUM [Concomitant]
     Indication: SUPPLEMENTATION THERAPY
     Dosage: 1TAB PER DAY
     Route: 048
     Dates: start: 201403
  5. PREMARIN CREAM [Concomitant]
     Indication: UTERINE PROLAPSE
     Route: 061
     Dates: start: 20130903
  6. POTASSIUM [Concomitant]
     Active Substance: POTASSIUM
     Indication: HYPOKALAEMIA
     Dosage: 40MEQ PER DAY
     Route: 048
     Dates: start: 20130923
  7. PAZOPANIB [Suspect]
     Active Substance: PAZOPANIB
     Indication: LIPOSARCOMA
     Dosage: 400MG PER DAY
     Route: 048
     Dates: start: 20130522, end: 20140124
  8. ASCORBIC ACID. [Concomitant]
     Active Substance: ASCORBIC ACID
     Indication: SUPPLEMENTATION THERAPY
     Route: 048

REACTIONS (1)
  - Gastric ulcer [Recovered/Resolved]

NARRATIVE: CASE EVENT DATE: 20140623
